FAERS Safety Report 5920471-9 (Version None)
Quarter: 2008Q4

REPORT INFORMATION
  Report Type: 
  Country: None (occurrence: None)
  Receive Date: 20081015
  Receipt Date: 20081015
  Transmission Date: 20090506
  Serious: Yes (Other)
  Sender: FDA-Public Use
  Company Number: None

PATIENT
  Age: 37 Year
  Sex: Female
  Weight: 59.8748 kg

DRUGS (1)
  1. KENALOG [Suspect]
     Indication: MULTIPLE SCLEROSIS
     Dosage: 40MG 1 TIME IM
     Route: 030
     Dates: start: 20080612, end: 20080612

REACTIONS (3)
  - INJECTION SITE DISCOLOURATION [None]
  - INJECTION SITE PAIN [None]
  - INJECTION SITE REACTION [None]
